FAERS Safety Report 6816733-3 (Version None)
Quarter: 2010Q3

REPORT INFORMATION
  Report Type: 
  Country: None (occurrence: None)
  Receive Date: 20100706
  Receipt Date: 20100622
  Transmission Date: 20110219
  Serious: Yes (Other)
  Sender: FDA-Public Use
  Company Number: PHHY2010US33088

PATIENT
  Sex: Male
  Weight: 120.18 kg

DRUGS (16)
  1. EXJADE [Suspect]
     Indication: MYELODYSPLASTIC SYNDROME
     Dosage: 2000 MG, DAILY
     Route: 048
     Dates: start: 20100510, end: 20100517
  2. EXJADE [Suspect]
     Indication: BLOOD IRON INCREASED
     Dosage: 2000 MG, DAILY
     Route: 048
     Dates: start: 20100614
  3. NIFEDIPINE [Suspect]
     Indication: BLOOD PRESSURE INCREASED
     Dosage: 30 MG, QD
     Route: 048
     Dates: start: 20100513, end: 20100517
  4. ALLOPURINOL [Concomitant]
  5. LANTUS [Concomitant]
  6. TEMAZEPAM [Concomitant]
  7. FLUCONAZOLE [Concomitant]
  8. HUMALOG [Concomitant]
  9. METFORMIN HCL [Concomitant]
  10. SLOW-MAG [Concomitant]
  11. COZAAR [Concomitant]
  12. AVANDIA [Concomitant]
  13. DARVOCET-N 100 [Concomitant]
  14. VALTREX [Concomitant]
  15. GUANFACINE HYDROCHLORIDE [Concomitant]
  16. XANAX [Concomitant]

REACTIONS (3)
  - ASTHENIA [None]
  - DYSPNOEA [None]
  - NAUSEA [None]
